FAERS Safety Report 6059110-8 (Version None)
Quarter: 2009Q1

REPORT INFORMATION
  Report Type: 
  Country: None (occurrence: None)
  Receive Date: 20090130
  Receipt Date: 20090122
  Transmission Date: 20090719
  Serious: Yes (Hospitalization)
  Sender: FDA-Public Use
  Company Number: US-AVENTIS-200910653US

PATIENT
  Sex: Female

DRUGS (2)
  1. LANTUS [Suspect]
     Route: 058
     Dates: start: 20080101
  2. OPTICLIK GREY [Suspect]
     Dates: start: 20080601

REACTIONS (6)
  - ARTHRALGIA [None]
  - BLOOD GLUCOSE DECREASED [None]
  - FEELING COLD [None]
  - HAEMORRHAGE [None]
  - HYPERHIDROSIS [None]
  - URINE ODOUR ABNORMAL [None]
